FAERS Safety Report 6443356-0 (Version None)
Quarter: 2009Q4

REPORT INFORMATION
  Report Type: 
  Country: None (occurrence: None)
  Receive Date: 20091117
  Receipt Date: 20091109
  Transmission Date: 20100525
  Serious: Yes (Hospitalization)
  Sender: FDA-Public Use
  Company Number: US-MERCK-0911USA01284

PATIENT
  Age: 55 Year
  Sex: Male

DRUGS (11)
  1. ZOCOR [Suspect]
     Indication: BLOOD CHOLESTEROL INCREASED
     Route: 048
     Dates: start: 20080101
  2. ZOCOR [Suspect]
     Route: 048
     Dates: end: 20090629
  3. NEORAL [Concomitant]
     Route: 065
  4. CELLCEPT [Concomitant]
     Route: 065
  5. PREDNISONE [Concomitant]
     Route: 048
  6. PLAVIX [Concomitant]
     Route: 065
  7. OMEPRAZOLE [Concomitant]
     Route: 048
  8. ALLOPURINOL [Concomitant]
     Route: 065
  9. AMLODIPINE [Concomitant]
     Route: 065
  10. ATENOLOL [Concomitant]
     Route: 065
  11. ASPIRIN [Concomitant]
     Route: 065

REACTIONS (5)
  - ANAEMIA [None]
  - APPARENT DEATH [None]
  - FATIGUE [None]
  - RENAL DISORDER [None]
  - RHABDOMYOLYSIS [None]
